FAERS Safety Report 7916992-X (Version None)
Quarter: 2011Q4

REPORT INFORMATION
  Report Type: 
  Country: None (occurrence: None)
  Receive Date: 20111116
  Receipt Date: 20111116
  Transmission Date: 20120403
  Serious: Yes (Other)
  Sender: FDA-Public Use
  Company Number: None

PATIENT
  Age: 39 Year
  Sex: Female

DRUGS (1)
  1. FENTANYL [Suspect]
     Dates: start: 20111110, end: 20111113

REACTIONS (7)
  - INCORRECT DOSE ADMINISTERED [None]
  - FOOD POISONING [None]
  - DEVICE LEAKAGE [None]
  - APPARENT DEATH [None]
  - VOMITING [None]
  - NAUSEA [None]
  - HYPERSOMNIA [None]
